FAERS Safety Report 10029836 (Version 1)
Quarter: 2014Q1

REPORT INFORMATION
  Report Type: Spontaneous
  Country: US (occurrence: None)
  Receive Date: 20140320
  Receipt Date: 20140320
  Transmission Date: 20141002
  Serious: Yes (Death)
  Sender: FDA-Public Use
  Company Number: US-20140002

PATIENT
  Age: 55 Year
  Sex: 0

DRUGS (2)
  1. LIPIODOL [Suspect]
     Indication: THERAPEUTIC EMBOLISATION
     Dosage: 1 IN 1 D
     Route: 013
  2. ADRIAMYCIN [Concomitant]

REACTIONS (4)
  - Multi-organ failure [None]
  - Cardio-respiratory arrest [None]
  - Respiratory distress [None]
  - Pulmonary embolism [None]
